FAERS Safety Report 7898634-5 (Version None)
Quarter: 2011Q4

REPORT INFORMATION
  Report Type: 
  Country: None (occurrence: None)
  Receive Date: 20111107
  Receipt Date: 20111107
  Transmission Date: 20120403
  Serious: Yes (Death)
  Sender: FDA-Public Use
  Company Number: None

PATIENT
  Age: 63 Year
  Sex: Female
  Weight: 94.347 kg

DRUGS (3)
  1. NEURONTIN [Concomitant]
     Route: 048
  2. LEXAPRO [Suspect]
     Indication: DEPRESSED MOOD
     Dosage: 40 MG PER DAY
     Dates: start: 20060204, end: 20060802
  3. HYDROCHLOROTHIAZIDE [Concomitant]
     Route: 048

REACTIONS (2)
  - SUDDEN DEATH [None]
  - TOXICOLOGIC TEST ABNORMAL [None]
